FAERS Safety Report 8947718 (Version 2)
Quarter: 2013Q1

REPORT INFORMATION
  Report Type: Spontaneous
  Country: JP (occurrence: JP)
  Receive Date: 20121204
  Receipt Date: 20130124
  Transmission Date: 20140127
  Serious: Yes (Hospitalization)
  Sender: FDA-Public Use
  Company Number: JP-009507513-1212JPN000270

PATIENT
  Sex: Male

DRUGS (5)
  1. GASTER [Suspect]
     Indication: GASTRITIS
     Dosage: 40 MG, UNKNOWN/D
     Route: 048
     Dates: start: 19980107, end: 20000830
  2. IMURAN [Suspect]
     Dosage: 50 MG, QD
     Route: 048
     Dates: end: 20000812
  3. SALAZOPYRIN [Suspect]
     Dosage: 3000 MG, QD
     Route: 048
     Dates: end: 20000830
  4. FERRUM [Suspect]
     Dosage: 100 MG, QD
     Route: 048
  5. DIBETOS [Suspect]
     Dosage: 100 MG, QD
     Route: 048
     Dates: end: 20000809

REACTIONS (1)
  - Granulocyte count decreased [Recovering/Resolving]
